FAERS Safety Report 17013816 (Version 3)
Quarter: 2020Q3

REPORT INFORMATION
  Report Type: Report from Study
  Country: FR (occurrence: FR)
  Receive Date: 20191111
  Receipt Date: 20200820
  Transmission Date: 20201102
  Serious: Yes (Death, Other)
  Sender: FDA-Public Use
  Company Number: FR-BRISTOL-MYERS SQUIBB COMPANY-BMS-2019-105659

PATIENT
  Age: 82 Year
  Sex: Female

DRUGS (2)
  1. NIVOLUMAB [Suspect]
     Active Substance: NIVOLUMAB
     Indication: SQUAMOUS CELL CARCINOMA
     Dosage: 240 MILLIGRAM, 1 CYCLE EVERY 15 DAY
     Route: 042
     Dates: start: 20190719, end: 20191011
  2. NIVOLUMAB [Suspect]
     Active Substance: NIVOLUMAB
     Indication: SQUAMOUS CELL CARCINOMA OF HEAD AND NECK

REACTIONS (13)
  - Dysphagia [Unknown]
  - Pain in jaw [Unknown]
  - Asthenia [Unknown]
  - Dyspnoea [Unknown]
  - Hyponatraemia [Unknown]
  - Gait disturbance [Unknown]
  - General physical condition abnormal [Fatal]
  - Hypokalaemia [Unknown]
  - Dehydration [Unknown]
  - Diarrhoea [Unknown]
  - Fatigue [Unknown]
  - Movement disorder [Unknown]
  - Oropharyngeal pain [Unknown]

NARRATIVE: CASE EVENT DATE: 20191025
